FAERS Safety Report 10440698 (Version 1)
Quarter: 2014Q3

REPORT INFORMATION
  Report Type: Spontaneous
  Country: US (occurrence: None)
  Receive Date: 20140905
  Receipt Date: 20140905
  Transmission Date: 20150326
  Serious: Yes (Other)
  Sender: FDA-Public Use
  Company Number: None

PATIENT
  Age: 49 Year
  Sex: Female
  Weight: 85.28 kg

DRUGS (35)
  1. LEVOTHYROXINE [Concomitant]
     Active Substance: LEVOTHYROXINE
  2. FLOXETINE [Concomitant]
  3. PREMARIN VAGINAL [Concomitant]
     Active Substance: ESTROGENS, CONJUGATED
  4. FUROSEMIDE. [Concomitant]
     Active Substance: FUROSEMIDE
  5. VIT-D3 [Concomitant]
  6. ATORVASTATIN [Concomitant]
     Active Substance: ATORVASTATIN
  7. POTASSIUM OTC [Concomitant]
  8. LYRICA [Suspect]
     Active Substance: PREGABALIN
     Indication: FIBROMYALGIA
     Route: 048
     Dates: start: 2007, end: 2008
  9. PROMETHAZINE [Concomitant]
     Active Substance: PROMETHAZINE\PROMETHAZINE HYDROCHLORIDE
  10. LYRICA [Suspect]
     Active Substance: PREGABALIN
     Indication: PAIN
     Route: 048
     Dates: start: 2007, end: 2008
  11. BIOTIN [Concomitant]
     Active Substance: BIOTIN
  12. LIBRAX [Concomitant]
     Active Substance: CHLORDIAZEPOXIDE HYDROCHLORIDE\CLIDINIUM BROMIDE
  13. MEPERIDINE [Concomitant]
     Active Substance: MEPERIDINE
  14. CEFACLER [Concomitant]
  15. LISINOPRIL. [Concomitant]
     Active Substance: LISINOPRIL
  16. OSAL + D3 [Concomitant]
  17. DHEA [Concomitant]
     Active Substance: DEHYDROEPIANDROSTERONE-3-SULFATE SODIUM
  18. LOMOTIL [Concomitant]
     Active Substance: ATROPINE SULFATE\DIPHENOXYLATE HYDROCHLORIDE
  19. ZOFRAN [Concomitant]
     Active Substance: ONDANSETRON HYDROCHLORIDE
  20. CYCLOBONAZ [Concomitant]
  21. RESTASIS [Concomitant]
     Active Substance: CYCLOSPORINE
  22. VITAMIN E [Concomitant]
     Active Substance: .ALPHA.-TOCOPHEROL
  23. DIAZEPAM. [Concomitant]
     Active Substance: DIAZEPAM
  24. METRONIDAZOLE. [Concomitant]
     Active Substance: METRONIDAZOLE
  25. TRIAMT-HCTZ [Concomitant]
  26. VALACYCLOVIR [Concomitant]
     Active Substance: VALACYCLOVIR HYDROCHLORIDE
  27. ZOLIPDEM [Concomitant]
  28. OXYCODONE [Concomitant]
     Active Substance: OXYCODONE
  29. PROMETHAZINE [Concomitant]
     Active Substance: PROMETHAZINE\PROMETHAZINE HYDROCHLORIDE
  30. OMEPRAZOLE. [Concomitant]
     Active Substance: OMEPRAZOLE
  31. ALEVE [Concomitant]
     Active Substance: NAPROXEN SODIUM
  32. PROPNAROLOL [Concomitant]
  33. KETOROLAC [Concomitant]
     Active Substance: KETOROLAC\KETOROLAC TROMETHAMINE
  34. ERYTHOMYCIN OPHALMOLIC OINTMENT [Concomitant]
     Active Substance: ERYTHROMYCIN
  35. ANUSOL HC SUPP RET [Concomitant]

REACTIONS (11)
  - Wheezing [None]
  - Gastrointestinal disorder [None]
  - Swelling face [None]
  - Dyspnoea [None]
  - Swelling [None]
  - Weight increased [None]
  - Joint range of motion decreased [None]
  - Local swelling [None]
  - Sigmoidectomy [None]
  - Cholecystectomy [None]
  - Colectomy [None]

NARRATIVE: CASE EVENT DATE: 2007
